FAERS Safety Report 6521008-6 (Version None)
Quarter: 2009Q4

REPORT INFORMATION
  Report Type: 
  Country: None (occurrence: None)
  Receive Date: 20091229
  Receipt Date: 20091223
  Transmission Date: 20100525
  Serious: Yes (Other)
  Sender: FDA-Public Use
  Company Number: US-AMGEN-US380367

PATIENT
  Sex: Male
  Weight: 112 kg

DRUGS (14)
  1. NPLATE [Suspect]
     Indication: IDIOPATHIC THROMBOCYTOPENIC PURPURA
     Route: 058
     Dates: start: 20091007
  2. CORTICOSTEROIDS [Concomitant]
     Route: 065
  3. ELAVIL [Concomitant]
  4. CLONIDINE [Concomitant]
  5. DOCUSATE [Concomitant]
  6. IRON [Concomitant]
  7. LASIX [Concomitant]
  8. POTASSIUM CHLORIDE [Concomitant]
  9. PREVACID [Concomitant]
  10. MAGNESIUM [Concomitant]
  11. SOLU-MEDROL [Concomitant]
  12. TYLENOL (CAPLET) [Concomitant]
  13. BENADRYL [Concomitant]
  14. MORPHINE [Concomitant]

REACTIONS (4)
  - FUNGAEMIA [None]
  - MENINGITIS [None]
  - PLATELET COUNT DECREASED [None]
  - SEPSIS [None]
